FAERS Safety Report 16664707 (Version 1)
Quarter: 2019Q3

REPORT INFORMATION
  Report Type: Spontaneous
  Country: GB (occurrence: GB)
  Receive Date: 20190803
  Receipt Date: 20190803
  Transmission Date: 20191004
  Serious: Yes (Hospitalization)
  Sender: FDA-Public Use
  Company Number: GB-ROCHE-2365700

PATIENT
  Age: 69 Year
  Sex: Female

DRUGS (14)
  1. CARBOPLATIN. [Suspect]
     Active Substance: CARBOPLATIN
     Indication: METASTATIC SQUAMOUS CELL CARCINOMA
     Dosage: UNKNOWN - PROVIDED BY TERTIARY CENTRE. ON CYCLE 4.
     Route: 042
     Dates: start: 20190404, end: 20190627
  2. ATORVASTATIN [Concomitant]
     Active Substance: ATORVASTATIN
  3. PARACETAMOL [Concomitant]
     Active Substance: ACETAMINOPHEN
  4. CAPECITABINE. [Suspect]
     Active Substance: CAPECITABINE
     Indication: METASTATIC SQUAMOUS CELL CARCINOMA
     Dosage: UNKNOWN - PROVIDED BY TERTIARY CENTRE. ON CYCLE 4.
     Route: 048
     Dates: start: 20190404, end: 20190627
  5. ENOXAPARIN [Concomitant]
     Active Substance: ENOXAPARIN
  6. PROCHLORPERAZINE. [Concomitant]
     Active Substance: PROCHLORPERAZINE
  7. CITALOPRAM [Concomitant]
     Active Substance: CITALOPRAM HYDROBROMIDE
  8. CYCLIZINE [Concomitant]
     Active Substance: CYCLIZINE
  9. CODEINE [Concomitant]
     Active Substance: CODEINE
  10. DIAZEPAM. [Concomitant]
     Active Substance: DIAZEPAM
  11. METOCLOPRAMIDE. [Concomitant]
     Active Substance: METOCLOPRAMIDE
  12. LANSOPRAZOLE. [Concomitant]
     Active Substance: LANSOPRAZOLE
  13. IRBESARTAN/HYDROCHLOROTHIAZIDE [Concomitant]
     Active Substance: HYDROCHLOROTHIAZIDE\IRBESARTAN
  14. AMLODIPINE [Concomitant]
     Active Substance: AMLODIPINE BESYLATE

REACTIONS (6)
  - Malaise [Not Recovered/Not Resolved]
  - Urine output decreased [Unknown]
  - Nausea [Unknown]
  - Confusional state [Unknown]
  - Vomiting [Unknown]
  - Decreased appetite [Unknown]

NARRATIVE: CASE EVENT DATE: 201906
